FAERS Safety Report 13854930 (Version 1)
Quarter: 2017Q3

REPORT INFORMATION
  Report Type: Spontaneous
  Country: US (occurrence: US)
  Receive Date: 20170810
  Receipt Date: 20170810
  Transmission Date: 20171127
  Serious: Yes (Death)
  Sender: FDA-Public Use
  Company Number: US-SA-2017SA082116

PATIENT
  Age: 64 Year
  Sex: Male
  Weight: 70.3 kg

DRUGS (21)
  1. LESCOL [Concomitant]
     Active Substance: FLUVASTATIN SODIUM
     Route: 048
  2. PRALUENT [Suspect]
     Active Substance: ALIROCUMAB
     Indication: TYPE IIA HYPERLIPIDAEMIA
     Route: 058
     Dates: start: 20151021, end: 20170502
  3. KWIKPEN [Concomitant]
  4. LISINOPRIL. [Concomitant]
     Active Substance: LISINOPRIL
     Dosage: PRINIVIL, ZESTRIL
     Route: 048
  5. ASPIRIN. [Concomitant]
     Active Substance: ASPIRIN
     Route: 048
  6. FENOFIBRATE. [Concomitant]
     Active Substance: FENOFIBRATE
     Route: 048
  7. NITROLINGUAL [Concomitant]
     Active Substance: NITROGLYCERIN
     Dosage: FORM: SPRAYS (UNDER THE TONGUE)
     Route: 060
  8. ALIROCUMAB PREFILLED PEN [Suspect]
     Active Substance: ALIROCUMAB
     Indication: TYPE IIA HYPERLIPIDAEMIA
     Route: 065
     Dates: start: 20151021, end: 20170502
  9. CENTRUM SILVER [Concomitant]
     Active Substance: MINERALS\VITAMINS
     Route: 048
  10. IBUPROFEN. [Concomitant]
     Active Substance: IBUPROFEN
     Route: 048
  11. ISOSORBIDE MONONITRATE. [Concomitant]
     Active Substance: ISOSORBIDE MONONITRATE
     Dosage: ISMO, MONOKET
     Route: 048
  12. LYRICA [Concomitant]
     Active Substance: PREGABALIN
     Route: 048
  13. ANDROGEL [Concomitant]
     Active Substance: TESTOSTERONE
     Dosage: STRENGTH: 1 % (5 MG/5 G)
     Route: 061
  14. TRIUMEQ [Concomitant]
     Active Substance: ABACAVIR SULFATE\DOLUTEGRAVIR SODIUM\LAMIVUDINE
     Indication: HIV INFECTION
     Route: 048
  15. VITAMIN D3 [Concomitant]
     Active Substance: CHOLECALCIFEROL
     Dosage: DOSE:5000 UNIT(S)
     Route: 048
  16. FAMOTIDINE. [Concomitant]
     Active Substance: FAMOTIDINE
     Route: 048
  17. PLAVIX [Concomitant]
     Active Substance: CLOPIDOGREL BISULFATE
     Route: 048
  18. COENZYME Q10 [Concomitant]
     Active Substance: UBIDECARENONE
     Route: 048
  19. HUMALOG MIX [Concomitant]
     Active Substance: INSULIN LISPRO
     Dosage: INJECT 10-15 UNITS UNDER THE SKIN IF BLOOD SUGAR LEVELS ARE GREATER THAN 150
     Route: 058
  20. COREG [Concomitant]
     Active Substance: CARVEDILOL
     Route: 048
  21. OXANDRIN [Concomitant]
     Active Substance: OXANDROLONE
     Route: 048

REACTIONS (42)
  - Blood urea nitrogen/creatinine ratio decreased [Fatal]
  - Laboratory test abnormal [Fatal]
  - Blood potassium increased [Fatal]
  - Anion gap decreased [Fatal]
  - N-terminal prohormone brain natriuretic peptide increased [Fatal]
  - Sputum discoloured [Fatal]
  - Blood pH decreased [Fatal]
  - PO2 decreased [Fatal]
  - Pneumocystis jirovecii pneumonia [Fatal]
  - Glomerular filtration rate decreased [Fatal]
  - Red blood cell count increased [Fatal]
  - Acute respiratory failure [Fatal]
  - Base excess decreased [Fatal]
  - Agonal rhythm [Fatal]
  - Renal failure [Fatal]
  - Blood creatinine increased [Fatal]
  - White blood cell count increased [Fatal]
  - Red cell distribution width increased [Fatal]
  - Haematocrit increased [Fatal]
  - Respiratory rate increased [Fatal]
  - Wheezing [Fatal]
  - Dry skin [Fatal]
  - Pulmonary oedema [Fatal]
  - Haemoglobin increased [Fatal]
  - Blood chloride increased [Fatal]
  - Speech disorder [Fatal]
  - Hypoxia [Fatal]
  - Oxygen saturation decreased [Fatal]
  - Blood glucose increased [Fatal]
  - Blood alkaline phosphatase decreased [Fatal]
  - Cyanosis central [Fatal]
  - Ventricular tachycardia [Fatal]
  - Heart rate increased [Fatal]
  - Troponin T increased [Fatal]
  - Neutrophil count increased [Fatal]
  - Monocyte count increased [Fatal]
  - Cough [Fatal]
  - Dyspnoea [Fatal]
  - Oxygen saturation [Fatal]
  - Blood bicarbonate decreased [Fatal]
  - Protein total increased [Fatal]
  - Aspartate aminotransferase increased [Fatal]

NARRATIVE: CASE EVENT DATE: 20170502
